FAERS Safety Report 4765424-1 (Version None)
Quarter: 2005Q3

REPORT INFORMATION
  Report Type: 
  Country: None (occurrence: None)
  Receive Date: 20050908
  Receipt Date: 20050823
  Transmission Date: 20060218
  Serious: Yes (Death, Life-Threatening, Hospitalization, Other)
  Sender: FDA-Public Use
  Company Number: PL-2005-014716

PATIENT
  Age: 44 Year
  Sex: Male
  Weight: 74.4 kg

DRUGS (17)
  1. CAMPATH 10/1ML (CAMPATH 10/ 1ML) (ALEMTUZUMAB) AMPULE [Suspect]
     Indication: CHRONIC LYMPHOCYTIC LEUKAEMIA
     Dosage: 30 MG/ M^2 6 CYCLES, INTRAVENOUS
     Route: 042
     Dates: start: 20050120, end: 20050617
  2. FLUDARABINE PHOSPHATE [Suspect]
     Indication: CHRONIC LYMPHOCYTIC LEUKAEMIA
     Dosage: 6 CYCLES, INTRAVENOUS
     Route: 042
     Dates: start: 20050120, end: 20050617
  3. RIFAMPICIN [Concomitant]
  4. VEROSPIRON [Concomitant]
  5. VITAMIN B6 [Concomitant]
  6. HEPA-MERZ (ORNITHINE ASPARTATE) [Concomitant]
  7. NEUPOGEN [Concomitant]
  8. POTASSIUM CHLORIDE [Concomitant]
  9. FUROSEMIDE [Concomitant]
  10. VFEND [Concomitant]
  11. MERONEM (MEROPENEM) [Concomitant]
  12. ZOFRAN [Concomitant]
  13. GLUCOSE [Concomitant]
  14. ALBUMIN (HUMAN) [Concomitant]
  15. NITROGLYCERIN ^A.L.^ [Concomitant]
  16. KABIVEN (AMINO ACIDS NOS, CARBOHYDRATES NOS, FATS NOS, ELECTROLYTES NO [Concomitant]
  17. SOLU-MEDROL [Concomitant]

REACTIONS (28)
  - ANURIA [None]
  - BLOOD PRESSURE INCREASED [None]
  - CARDIAC FAILURE [None]
  - CHOLESTASIS [None]
  - CHRONIC LYMPHOCYTIC LEUKAEMIA [None]
  - COMA HEPATIC [None]
  - DISEASE PROGRESSION [None]
  - FEBRILE NEUTROPENIA [None]
  - GENERAL PHYSICAL HEALTH DETERIORATION [None]
  - HEPATIC FAILURE [None]
  - HEPATOCELLULAR DAMAGE [None]
  - HEPATOMEGALY [None]
  - HEPATOTOXICITY [None]
  - HYDROTHORAX [None]
  - KIDNEY ENLARGEMENT [None]
  - LOSS OF CONSCIOUSNESS [None]
  - LUNG INFILTRATION [None]
  - LYMPHADENOPATHY [None]
  - PANCYTOPENIA [None]
  - PNEUMONIA [None]
  - PROCEDURAL COMPLICATION [None]
  - RENAL FAILURE [None]
  - RESPIRATORY FAILURE [None]
  - SPLENOMEGALY [None]
  - THERAPY NON-RESPONDER [None]
  - TUBERCULOSIS [None]
  - ULTRASOUND KIDNEY ABNORMAL [None]
  - VENTRICULAR DYSFUNCTION [None]
